FAERS Safety Report 4426557-2 (Version None)
Quarter: 2004Q3

REPORT INFORMATION
  Report Type: 
  Country: None (occurrence: None)
  Receive Date: 20040816
  Receipt Date: 20040804
  Transmission Date: 20050211
  Serious: Yes (Hospitalization)
  Sender: FDA-Public Use
  Company Number: ES-BRISTOL-MYERS SQUIBB COMPANY-12662979

PATIENT
  Age: 58 Year
  Sex: Male

DRUGS (2)
  1. CETUXIMAB [Suspect]
     Indication: COLORECTAL CANCER
     Dosage: MOST RECENT INFUSION 16-JUL-2004
     Route: 041
     Dates: start: 20040514
  2. IRINOTECAN [Suspect]
     Indication: COLORECTAL CANCER
     Dosage: 3RD INFUSION: 16-JUL-2004
     Route: 042
     Dates: start: 20040514, end: 20040716

REACTIONS (2)
  - DIARRHOEA [None]
  - MUCOSAL INFLAMMATION [None]
